FAERS Safety Report 4698866-3 (Version None)
Quarter: 2005Q2

REPORT INFORMATION
  Report Type: 
  Country: None (occurrence: None)
  Receive Date: 20050623
  Receipt Date: 20050609
  Transmission Date: 20051028
  Serious: Yes (Hospitalization)
  Sender: FDA-Public Use
  Company Number: 215182

PATIENT
  Age: 37 Year
  Sex: Female
  Weight: 48 kg

DRUGS (8)
  1. RITUXAN [Suspect]
     Indication: NON-HODGKIN'S LYMPHOMA
     Dosage: 600 MG, INTRAVENOUS
     Route: 042
     Dates: start: 20011213, end: 20020225
  2. ENDOXAN (CYLOPHOSPHAMIDE) [Suspect]
     Indication: NON-HODGKIN'S LYMPHOMA
     Dosage: 1000 MG, XD1, INTRAVENOUS
     Route: 042
     Dates: start: 20011217, end: 20020305
  3. DOXORUBICIN HYDROCHLORIDE [Suspect]
     Indication: NON-HODGKIN'S LYMPHOMA
     Dosage: 70 MG, XD1, INTRAVENOUS
     Route: 042
     Dates: start: 20011217, end: 20020305
  4. PREDONINE (PREDNISOLONE SODIUM SUCCINATE, PREDNISOLONE, PREDNISOLONE A [Suspect]
     Indication: NON-HODGKIN'S LYMPHOMA
     Dosage: 70 MG, XD1-5, ORAL
     Route: 048
     Dates: start: 20011217, end: 20020305
  5. ONCOVIN [Suspect]
     Indication: NON-HODGKIN'S LYMPHOMA
     Dosage: 2 MG, XD1, INTRAVENOUS
     Route: 042
     Dates: start: 20011217, end: 20020305
  6. ZOFRAN [Concomitant]
  7. PYRINAZIN (JAPAN) (ACETAMINOPHEN) [Concomitant]
  8. VENA  (DIPHENHYDRAMINE HYDROCHLORIDE) [Concomitant]

REACTIONS (3)
  - ANAEMIA [None]
  - LEUKOPENIA [None]
  - NEUTROPENIA [None]
